FAERS Safety Report 5337806-0 (Version None)
Quarter: 2007Q2

REPORT INFORMATION
  Report Type: 
  Country: None (occurrence: None)
  Receive Date: 20070530
  Receipt Date: 20070524
  Transmission Date: 20071010
  Serious: Yes (Hospitalization)
  Sender: FDA-Public Use
  Company Number: JP-SP-2007-00786

PATIENT
  Age: 74 Year
  Sex: Male

DRUGS (1)
  1. IMMUCYST [Suspect]
     Indication: BLADDER CANCER
     Route: 043
     Dates: start: 20061130, end: 20070125

REACTIONS (4)
  - BOVINE TUBERCULOSIS [None]
  - INCORRECT DOSE ADMINISTERED [None]
  - PULMONARY TUBERCULOSIS [None]
  - TUBERCULOSIS TEST POSITIVE [None]
